FAERS Safety Report 9053610 (Version 1)
Quarter: 2013Q1

REPORT INFORMATION
  Report Type: Spontaneous
  Country: US (occurrence: None)
  Receive Date: 20130117
  Receipt Date: 20130117
  Transmission Date: 20140127
  Serious: Yes (Disabling, Other)
  Sender: FDA-Public Use
  Company Number: ACO_33689_2013

PATIENT
  Sex: Male

DRUGS (2)
  1. AMPYRA (DALFAMPRIDINE) TABLET [Suspect]
     Indication: GAIT DISTURBANCE
  2. TYSABRI (NATALIZUMAB) [Suspect]
     Indication: PRODUCT USED FOR UNKNOWN INDICATION

REACTIONS (2)
  - Drug ineffective [None]
  - Abasia [None]
